FAERS Safety Report 10269682 (Version 1)
Quarter: 2014Q2

REPORT INFORMATION
  Report Type: Spontaneous
  Country: US (occurrence: None)
  Receive Date: 20140606
  Receipt Date: 20140606
  Transmission Date: 20141212
  Serious: Yes (Disabling, Other)
  Sender: FDA-Public Use
  Company Number: 003-182

PATIENT
  Age: 17 Year
  Sex: Male

DRUGS (1)
  1. CROFAB (BTG INTERNATIONAL, INC) [Suspect]
     Indication: SNAKE BITE
     Dosage: 26 VIALS TOTAL
     Dates: start: 20080628, end: 20080701

REACTIONS (2)
  - Ischaemic stroke [None]
  - Haemorrhage intracranial [None]
